FAERS Safety Report 23026480 (Version 1)
Quarter: 2023Q4

REPORT INFORMATION
  Report Type: Other
  Country: NL (occurrence: NL)
  Receive Date: 20231004
  Receipt Date: 20231004
  Transmission Date: 20240110
  Serious: Yes (Death, Hospitalization)
  Sender: FDA-Public Use
  Company Number: NL-DEXPHARM-20232432

PATIENT
  Age: 9 Year

DRUGS (4)
  1. METHOTREXATE [Interacting]
     Active Substance: METHOTREXATE
  2. VINCRISTINE [Interacting]
     Active Substance: VINCRISTINE
  3. DEXAMETHASONE [Interacting]
     Active Substance: DEXAMETHASONE
  4. MERCAPTOPURINE [Interacting]
     Active Substance: MERCAPTOPURINE

REACTIONS (7)
  - Cognitive disorder [Fatal]
  - Anxiety [Fatal]
  - Depression [Fatal]
  - Decubitus ulcer [Fatal]
  - Pain [Fatal]
  - Constipation [Fatal]
  - Drug interaction [Fatal]
